FAERS Safety Report 16706170 (Version 1)
Quarter: 2019Q3

REPORT INFORMATION
  Report Type: Spontaneous
  Country: US (occurrence: US)
  Receive Date: 20190815
  Receipt Date: 20190815
  Transmission Date: 20191004
  Serious: No
  Sender: FDA-Public Use
  Company Number: US-PFIZER INC-2019349023

PATIENT
  Sex: Male
  Weight: 129.2 kg

DRUGS (1)
  1. NEURONTIN [Suspect]
     Active Substance: GABAPENTIN
     Dosage: 2400 MG, UNK
     Dates: end: 2003

REACTIONS (1)
  - Abdominal discomfort [Unknown]
